FAERS Safety Report 8817946 (Version 1)
Quarter: 2012Q4

REPORT INFORMATION
  Report Type: 
  Country: US (occurrence: US)
  Receive Date: 20121001
  Receipt Date: 20121001
  Transmission Date: 20130627
  Serious: Yes (Hospitalization)
  Sender: FDA-Public Use
  Company Number: US-ASTRAZENECA-2012SE73285

PATIENT
  Age: 20 Year
  Sex: Male
  Weight: 90.7 kg

DRUGS (7)
  1. SEROQUEL [Suspect]
     Indication: BIPOLAR DISORDER
     Route: 048
     Dates: start: 200307, end: 200307
  2. TRILEPTAL [Suspect]
     Indication: BIPOLAR DISORDER
     Dates: start: 200306, end: 2004
  3. TRILEPTAL [Suspect]
     Indication: BIPOLAR DISORDER
     Dates: start: 2005
  4. GEODON [Suspect]
     Indication: BIPOLAR DISORDER
     Dates: start: 200307
  5. GEODON [Suspect]
     Indication: BIPOLAR DISORDER
     Dates: end: 2004
  6. GEODON [Suspect]
     Indication: BIPOLAR DISORDER
     Dates: start: 2005
  7. ZYPREXA [Suspect]
     Indication: BIPOLAR DISORDER
     Dates: start: 200307, end: 200307

REACTIONS (3)
  - Mania [Recovered/Resolved]
  - Mania [Recovered/Resolved]
  - Drug ineffective [Unknown]
